FAERS Safety Report 5135323-4 (Version None)
Quarter: 2006Q4

REPORT INFORMATION
  Report Type: 
  Country: None (occurrence: None)
  Receive Date: 20061024
  Receipt Date: 20061024
  Transmission Date: 20070319
  Serious: Yes (Other)
  Sender: FDA-Public Use
  Company Number: None

PATIENT
  Age: 17 Year
  Sex: Female
  Weight: 59.8748 kg

DRUGS (1)
  1. PROPYLTHIOURACIL [Suspect]
     Indication: HYPERTHYROIDISM
     Dosage: 50 MG 3 TIMES A DAY ORAL
     Route: 048
     Dates: start: 20060801, end: 20061021

REACTIONS (9)
  - DIZZINESS [None]
  - EAR PAIN [None]
  - HEADACHE [None]
  - JOINT SWELLING [None]
  - PHARYNGOLARYNGEAL PAIN [None]
  - RASH PRURITIC [None]
  - TRICHORRHEXIS [None]
  - VOMITING [None]
  - WEIGHT DECREASED [None]
